FAERS Safety Report 7322947-9 (Version None)
Quarter: 2011Q1

REPORT INFORMATION
  Report Type: 
  Country: None (occurrence: None)
  Receive Date: 20110301
  Receipt Date: 20110217
  Transmission Date: 20110831
  Serious: Yes (Other)
  Sender: FDA-Public Use
  Company Number: PHHY2010CA22471

PATIENT
  Sex: Male

DRUGS (12)
  1. EXJADE [Suspect]
     Indication: THALASSAEMIA
     Dosage: 500 MG, QD
     Route: 048
     Dates: start: 20091212
  2. FOLIC ACID [Concomitant]
  3. SOTALOL HYDROCHLORIDE [Concomitant]
  4. FLOMAX [Concomitant]
  5. INSULIN [Concomitant]
  6. HYDROXYUREA [Concomitant]
  7. CALCIUM [Concomitant]
  8. VITAMIN D [Concomitant]
  9. OXYCONTIN [Concomitant]
     Dosage: UNK
  10. DIDROCAL [Concomitant]
  11. WARFARIN [Concomitant]
  12. GABAPENTIN [Concomitant]

REACTIONS (9)
  - EYE MOVEMENT DISORDER [None]
  - FLATULENCE [None]
  - BACK PAIN [None]
  - OEDEMA PERIPHERAL [None]
  - DIZZINESS [None]
  - MUSCULAR WEAKNESS [None]
  - FEELING COLD [None]
  - PAIN IN EXTREMITY [None]
  - TREMOR [None]
